FAERS Safety Report 5767786-5 (Version None)
Quarter: 2008Q2

REPORT INFORMATION
  Report Type: 
  Country: None (occurrence: None)
  Receive Date: 20080612
  Receipt Date: 20080602
  Transmission Date: 20081010
  Serious: Yes (Other)
  Sender: FDA-Public Use
  Company Number: NL-BAXTER-2008BH000445

PATIENT
  Age: 58 Year
  Sex: Female

DRUGS (2)
  1. TISSUCOL/TISSEEL DUO STIM3 [Suspect]
     Indication: MASTECTOMY
     Route: 065
     Dates: start: 20070925, end: 20070925
  2. TISSUCOL/TISSEEL DUO STIM3 [Suspect]
     Indication: LYMPHADENECTOMY
     Route: 065
     Dates: start: 20070925, end: 20070925

REACTIONS (3)
  - IMPAIRED HEALING [None]
  - SEROMA [None]
  - WOUND INFECTION [None]
